FAERS Safety Report 16628887 (Version 1)
Quarter: 2019Q3

REPORT INFORMATION
  Report Type: Spontaneous
  Country: CA (occurrence: CA)
  Receive Date: 20190725
  Receipt Date: 20190725
  Transmission Date: 20191004
  Serious: Yes (Other)
  Sender: FDA-Public Use
  Company Number: CA-BAYER-2019-133774

PATIENT
  Age: 25 Year
  Sex: Female

DRUGS (2)
  1. ALDACTONE [POTASSIUM CANRENOATE] [Suspect]
     Active Substance: CANRENOATE POTASSIUM
     Indication: ACNE
     Route: 048
  2. YAZ [Suspect]
     Active Substance: DROSPIRENONE\ETHINYL ESTRADIOL
     Indication: ACNE
     Dosage: 1 DF, QD
     Route: 048

REACTIONS (4)
  - Eye swelling [Unknown]
  - Dyspnoea [Unknown]
  - Eye pruritus [Unknown]
  - Angioedema [Unknown]
